FAERS Safety Report 5024604-0 (Version None)
Quarter: 2006Q2

REPORT INFORMATION
  Report Type: 
  Country: None (occurrence: None)
  Receive Date: 20060426
  Receipt Date: 20060211
  Transmission Date: 20061013
  Serious: Yes (Other)
  Sender: FDA-Public Use
  Company Number: 2006007195

PATIENT
  Age: 48 Year
  Sex: Female
  Weight: 66.2252 kg

DRUGS (16)
  1. LYRICA [Suspect]
     Indication: NEURALGIA
     Dosage: 150 MG (75 MG,2 IN 1 D),ORAL
     Route: 048
     Dates: start: 20051216, end: 20051219
  2. KLONOPIN [Suspect]
     Indication: PAIN IN EXTREMITY
     Dosage: 2 MG (2 MG,1 IN 1 D),ORAL
     Route: 048
  3. AGGRENOX [Suspect]
     Indication: PROPHYLAXIS
     Dosage: (2 IN 1 D)
     Dates: start: 20050101
  4. NEXIUM [Concomitant]
  5. EVISTA [Concomitant]
  6. VITAMINS (VITAMINS) [Concomitant]
  7. VITAMIN B12 [Concomitant]
  8. PROVIGIL [Concomitant]
  9. TUMS (CALCIUM CARBONATE) [Concomitant]
  10. TEGRETOL [Concomitant]
  11. IRON (IRON) [Concomitant]
  12. GINSENG (GINSENG) [Concomitant]
  13. GLUCOSAMINE (GLUCOSAMINE) [Concomitant]
  14. TRAZODONE HCL [Concomitant]
  15. ALL OTHER THERAPEUTIC PRODUCTS (ALL OTHER THERAPEUTIC PRODUCTS) [Concomitant]
  16. IMMUNOGLOBULINS (IMMUNOGLOBULINS) [Concomitant]

REACTIONS (11)
  - BLOOD TEST ABNORMAL [None]
  - DIFFICULTY IN WALKING [None]
  - DRUG INTERACTION [None]
  - EYE IRRITATION [None]
  - FEELING ABNORMAL [None]
  - MAMMOGRAM ABNORMAL [None]
  - PHOTOPHOBIA [None]
  - THINKING ABNORMAL [None]
  - TRANSIENT ISCHAEMIC ATTACK [None]
  - VAGINAL HAEMORRHAGE [None]
  - VISUAL DISTURBANCE [None]
